FAERS Safety Report 16577007 (Version 1)
Quarter: 2019Q3

REPORT INFORMATION
  Report Type: Spontaneous
  Country: US (occurrence: US)
  Receive Date: 20190715
  Receipt Date: 20190715
  Transmission Date: 20191004
  Serious: Yes (Hospitalization)
  Sender: FDA-Public Use
  Company Number: None

PATIENT
  Age: 70 Year
  Sex: Female

DRUGS (5)
  1. REPATHA [Suspect]
     Active Substance: EVOLOCUMAB
     Indication: PRODUCT USED FOR UNKNOWN INDICATION
     Dosage: ?          OTHER FREQUENCY:EVERY TWO WEEKS;?
     Route: 058
     Dates: start: 20170921
  2. BYSTOLIC, TRAMADOL, DILT-XR [Concomitant]
  3. SPIRONOLACTONE. [Concomitant]
     Active Substance: SPIRONOLACTONE
  4. CLOPIDOGREL, ALPRAZOLAM, OLMESA MEDOX [Concomitant]
  5. OMEPRAZOLE, BUMETANIDE, SERTRALINE [Concomitant]

REACTIONS (2)
  - Blood count abnormal [None]
  - Anaemia [None]

NARRATIVE: CASE EVENT DATE: 20190703
